FAERS Safety Report 6863314-1 (Version None)
Quarter: 2010Q3

REPORT INFORMATION
  Report Type: 
  Country: None (occurrence: None)
  Receive Date: 20100721
  Receipt Date: 20100714
  Transmission Date: 20110219
  Serious: Yes (Congenital Anomaly)
  Sender: FDA-Public Use
  Company Number: GB-TEVA-241581ISR

PATIENT
  Sex: Female

DRUGS (2)
  1. ONDANSETRON [Suspect]
     Indication: HYPEREMESIS GRAVIDARUM
     Route: 064
  2. CYCLIZINE [Suspect]
     Indication: HYPEREMESIS GRAVIDARUM
     Route: 064

REACTIONS (1)
  - ANORECTAL DISORDER [None]
